FAERS Safety Report 9501196 (Version 1)
Quarter: 2013Q3

REPORT INFORMATION
  Report Type: Spontaneous
  Country: ES (occurrence: ES)
  Receive Date: 20130905
  Receipt Date: 20130905
  Transmission Date: 20140515
  Serious: Yes (Other)
  Sender: FDA-Public Use
  Company Number: ES-ABBOTT-13P-144-1142952-00

PATIENT
  Sex: 0

DRUGS (1)
  1. ADALIMUMAB [Suspect]
     Indication: COLITIS ULCERATIVE
     Dosage: INITIAL MAINTENANCE DOSE
     Route: 058

REACTIONS (2)
  - Colectomy [Unknown]
  - No therapeutic response [Unknown]
